FAERS Safety Report 8485153 (Version 2)
Quarter: 2013Q1

REPORT INFORMATION
  Report Type: Report from Study
  Country: US (occurrence: US)
  Receive Date: 20120330
  Receipt Date: 20130318
  Transmission Date: 20140127
  Serious: Yes (Hospitalization)
  Sender: FDA-Public Use
  Company Number: PHHO2012US004870

PATIENT
  Age: 56 Year
  Sex: Male

DRUGS (3)
  1. MYCOPHENOLATE MOFETIL [Suspect]
     Indication: RENAL TRANSPLANT
     Dosage: 1000 MG, BID
     Dates: start: 20111222, end: 20120323
  2. PREDNISONE [Suspect]
     Indication: RENAL TRANSPLANT
  3. PROGRAF [Suspect]
     Indication: RENAL TRANSPLANT

REACTIONS (2)
  - Leukopenia [Not Recovered/Not Resolved]
  - Urosepsis [Not Recovered/Not Resolved]
